FAERS Safety Report 8553721-3 (Version None)
Quarter: 2012Q3

REPORT INFORMATION
  Report Type: 
  Country: None (occurrence: None)
  Receive Date: 20120731
  Receipt Date: 20120725
  Transmission Date: 20120928
  Serious: Yes (Hospitalization)
  Sender: FDA-Public Use
  Company Number: JP-B.I. PHARMACEUTICALS,INC./RIDGEFIELD-2012-BP-16410NB

PATIENT
  Age: 73 Year
  Sex: Male

DRUGS (3)
  1. MIRTAZAPINE [Suspect]
     Route: 065
  2. PRAMIPEXOLE DIHYDROCHLORIDE [Suspect]
     Indication: PARKINSON'S DISEASE
     Dosage: 2 MG
     Route: 048
  3. MENEST [Suspect]
     Indication: PARKINSON'S DISEASE
     Dosage: 300 MG
     Route: 048

REACTIONS (1)
  - COMPRESSION FRACTURE [None]
